FAERS Safety Report 4522833-3 (Version None)
Quarter: 2004Q4

REPORT INFORMATION
  Report Type: 
  Country: None (occurrence: None)
  Receive Date: 20041207
  Receipt Date: 20041124
  Transmission Date: 20050328
  Serious: Yes (Other)
  Sender: FDA-Public Use
  Company Number: HQWYE693529NOV04

PATIENT
  Age: 74 Year
  Sex: Male

DRUGS (3)
  1. CORDARONE [Suspect]
     Indication: ATRIAL FIBRILLATION
     Dosage: 200 MG 1X PER 1 DAY ORAL
     Route: 048
     Dates: start: 20040810, end: 20041112
  2. MARCUMAR [Suspect]
     Indication: ATRIAL FIBRILLATION
     Dosage: 3 MG TABLET ORAL ; SEE IMAGE
     Route: 048
     Dates: end: 20040101
  3. MARCUMAR [Suspect]
     Indication: ATRIAL FIBRILLATION
     Dosage: 3 MG TABLET ORAL ; SEE IMAGE
     Route: 048
     Dates: start: 20040101

REACTIONS (3)
  - DRUG INTERACTION [None]
  - HYPERTHYROIDISM [None]
  - PROTHROMBIN TIME SHORTENED [None]
